FAERS Safety Report 7985053-6 (Version None)
Quarter: 2011Q4

REPORT INFORMATION
  Report Type: 
  Country: None (occurrence: None)
  Receive Date: 20111216
  Receipt Date: 20111205
  Transmission Date: 20120403
  Serious: Yes (Other)
  Sender: FDA-Public Use
  Company Number: US-BAYER-2011-117273

PATIENT
  Age: 69 Year
  Sex: Male
  Weight: 90.703 kg

DRUGS (4)
  1. ALKA-SELTZER PM [Suspect]
     Indication: PRODUCT USED FOR UNKNOWN INDICATION
     Dosage: 2 DF, QD, BOTTLE COUNT 24S
     Route: 048
     Dates: start: 20111118, end: 20111119
  2. XANAX [Concomitant]
  3. ALKA-SELTZER PM [Suspect]
     Dosage: 1 DF, QD, BOTTLE COUNT 24S
     Route: 048
     Dates: start: 20111120
  4. AMBIEN [Concomitant]

REACTIONS (6)
  - HALLUCINATION, AUDITORY [None]
  - HALLUCINATION, VISUAL [None]
  - DYSKINESIA [None]
  - MUSCLE SPASMS [None]
  - INSOMNIA [None]
  - TINNITUS [None]
